FAERS Safety Report 20385431 (Version 1)
Quarter: 2022Q1

REPORT INFORMATION
  Report Type: Spontaneous
  Country: CA (occurrence: CA)
  Receive Date: 20220127
  Receipt Date: 20220127
  Transmission Date: 20220423
  Serious: Yes (Other)
  Sender: FDA-Public Use
  Company Number: CA-PFIZER INC-202101780498

PATIENT
  Age: 41 Year
  Sex: Female
  Weight: 59.5 kg

DRUGS (2)
  1. XELJANZ [Suspect]
     Active Substance: TOFACITINIB CITRATE
     Indication: Colitis ulcerative
     Dosage: 10 MG, 2X/DAY
     Route: 048
     Dates: start: 20211125, end: 2021
  2. METHOTREXATE [Concomitant]
     Active Substance: METHOTREXATE
     Dosage: 15 MG, WEEKLY
     Route: 058
     Dates: start: 20210807

REACTIONS (5)
  - Large intestine operation [Unknown]
  - Rectal haemorrhage [Not Recovered/Not Resolved]
  - Gastrointestinal anastomotic leak [Not Recovered/Not Resolved]
  - Ostomy bag placement [Not Recovered/Not Resolved]
  - Rectal spasm [Not Recovered/Not Resolved]

NARRATIVE: CASE EVENT DATE: 20211216
